FAERS Safety Report 8479180 (Version 3)
Quarter: 2013Q3

REPORT INFORMATION
  Report Type: Spontaneous
  Country: US (occurrence: None)
  Receive Date: 20120321
  Receipt Date: 20130813
  Transmission Date: 20140515
  Serious: Yes (Death)
  Sender: FDA-Public Use
  Company Number: 2012P1009531

PATIENT
  Age: 76 Year
  Sex: Female

DRUGS (25)
  1. INFUMORPH [Suspect]
     Indication: POST LAMINECTOMY SYNDROME
     Route: 037
     Dates: start: 101202
  2. INFUMORPH [Suspect]
     Indication: SPINAL PAIN
     Route: 037
     Dates: start: 101202
  3. SYNTHROID [Concomitant]
  4. HYGROTON [Concomitant]
  5. DIPROLENE [Concomitant]
  6. HYDRODIURIL [Concomitant]
  7. ALLEGRA [Concomitant]
  8. COREG [Concomitant]
  9. CELEBREX [Concomitant]
  10. CYMBALTA [Concomitant]
  11. GARLIC [Concomitant]
  12. GELNIQUE [Concomitant]
  13. COZAAR [Concomitant]
  14. LUMIGAN [Concomitant]
  15. NITROSTAT [Concomitant]
  16. FISH OIL [Concomitant]
  17. PLAVIX [Concomitant]
  18. MIRALAX [Concomitant]
  19. PRILOSEC [Concomitant]
  20. CALCIUM PLUS VITAMIN D [Concomitant]
  21. CENTRUM SILVER [Concomitant]
  22. LIPITOR [Concomitant]
  23. NORVASC [Concomitant]
  24. MORPHINE [Concomitant]
  25. DESYREL [Concomitant]

REACTIONS (10)
  - Death [None]
  - Surgery [None]
  - Post procedural complication [None]
  - Procedural pain [None]
  - Bradycardia [None]
  - Post procedural complication [None]
  - Procedural nausea [None]
  - Procedural vomiting [None]
  - Ecchymosis [None]
  - Laceration [None]
